FAERS Safety Report 7934324-8 (Version None)
Quarter: 2011Q4

REPORT INFORMATION
  Report Type: 
  Country: None (occurrence: None)
  Receive Date: 20111122
  Receipt Date: 20111111
  Transmission Date: 20120403
  Serious: Yes (Hospitalization)
  Sender: FDA-Public Use
  Company Number: US-GLAXOSMITHKLINE-A0813512A

PATIENT
  Sex: Female
  Weight: 122.7 kg

DRUGS (11)
  1. AVANDIA [Suspect]
     Indication: DIABETES MELLITUS
     Dosage: 4MG PER DAY
     Route: 048
     Dates: start: 20000602, end: 20060101
  2. TOPAMAX [Concomitant]
  3. CLONIDINE [Concomitant]
  4. PROVIGIL [Concomitant]
  5. METOPROLOL TARTRATE [Concomitant]
  6. HYZAAR [Concomitant]
  7. DILTIAZEM HCL [Concomitant]
  8. LANSOPRAZOLE [Concomitant]
  9. AVANDAMET [Suspect]
     Indication: DIABETES MELLITUS
     Route: 048
     Dates: start: 20060101, end: 20070801
  10. PAXIL [Concomitant]
  11. INSULIN [Concomitant]

REACTIONS (5)
  - TRANSIENT ISCHAEMIC ATTACK [None]
  - CARDIAC FAILURE CONGESTIVE [None]
  - CORONARY ARTERY DISEASE [None]
  - MYOCARDIAL INFARCTION [None]
  - CEREBROVASCULAR ACCIDENT [None]
